FAERS Safety Report 9979699 (Version 2)
Quarter: 2014Q1

REPORT INFORMATION
  Report Type: Report from Study
  Country: US (occurrence: US)
  Receive Date: 20140306
  Receipt Date: 20140306
  Transmission Date: 20141002
  Serious: No
  Sender: FDA-Public Use
  Company Number: US-ABBVIE-13P-163-1158203-00

PATIENT
  Age: 66 Year
  Sex: Male

DRUGS (12)
  1. HUMIRA [Suspect]
     Indication: CROHN^S DISEASE
     Dates: start: 20130927
  2. HUMIRA [Suspect]
     Dates: start: 20131010
  3. IMURAN [Concomitant]
     Indication: CROHN^S DISEASE
     Dosage: 100MG DAILY
  4. IMURAN [Concomitant]
     Dosage: 75 MG DAILY
     Dates: start: 20131004
  5. LEVOTHYROXINE [Concomitant]
     Indication: THYROIDECTOMY
     Dosage: 1.75MG DAILY
  6. LIALDA [Concomitant]
     Indication: CROHN^S DISEASE
  7. METOPROLOL [Concomitant]
     Indication: ATRIAL FIBRILLATION
     Dosage: 25MG DAILY
  8. FOLIC ACID [Concomitant]
     Indication: PRODUCT USED FOR UNKNOWN INDICATION
  9. PREDNISONE [Concomitant]
     Indication: CROHN^S DISEASE
     Dosage: 30MG DAILY TAPERING DOSE
     Dates: end: 20131109
  10. LASIX [Concomitant]
     Indication: PRODUCT USED FOR UNKNOWN INDICATION
  11. METOPROLOL [Concomitant]
     Indication: BLOOD PRESSURE
  12. METOPROLOL [Concomitant]

REACTIONS (4)
  - Swelling [Not Recovered/Not Resolved]
  - Fluid retention [Not Recovered/Not Resolved]
  - Gastrointestinal disorder [Recovering/Resolving]
  - Swelling [Recovering/Resolving]
